FAERS Safety Report 13101105 (Version 1)
Quarter: 2017Q1

REPORT INFORMATION
  Report Type: Spontaneous
  Country: US (occurrence: US)
  Receive Date: 20170110
  Receipt Date: 20170110
  Transmission Date: 20170428
  Serious: Yes (Hospitalization)
  Sender: FDA-Public Use
  Company Number: None

PATIENT
  Age: 68 Year
  Sex: Male
  Weight: 67.5 kg

DRUGS (1)
  1. WARFARIN [Suspect]
     Active Substance: WARFARIN
     Indication: ATRIAL FIBRILLATION
     Dosage: 5 MG PM PO
     Route: 048
     Dates: start: 20160523

REACTIONS (4)
  - Cerebrovascular accident [None]
  - Embolic stroke [None]
  - Transient ischaemic attack [None]
  - Therapy cessation [None]

NARRATIVE: CASE EVENT DATE: 20161020
